FAERS Safety Report 5714909-X (Version None)
Quarter: 2008Q2

REPORT INFORMATION
  Report Type: 
  Country: None (occurrence: None)
  Receive Date: 20080423
  Receipt Date: 20070918
  Transmission Date: 20081010
  Serious: Yes (Other)
  Sender: FDA-Public Use
  Company Number: US-BAYER-US-2007-035160

PATIENT
  Age: 45 Year
  Sex: Female
  Weight: 97 kg

DRUGS (8)
  1. LEUKINE [Suspect]
     Indication: BREAST CANCER
     Route: 058
     Dates: start: 20070807, end: 20070807
  2. TAXOTERE [Concomitant]
     Indication: BREAST CANCER
     Route: 042
     Dates: start: 20070806
  3. CARBOPLATIN [Concomitant]
     Indication: BREAST CANCER
     Route: 042
     Dates: start: 20070806
  4. HERCEPTIN ^HOFFMANN-LA ROCHE^ [Concomitant]
     Indication: BREAST CANCER
     Route: 042
     Dates: start: 20070806
  5. EMEND [Concomitant]
     Route: 048
     Dates: start: 20070806, end: 20070808
  6. DECADRON /NET/ [Concomitant]
     Dosage: UNIT DOSE: 4 MG
     Route: 048
     Dates: start: 20070807, end: 20070809
  7. NAPROSYN [Concomitant]
     Indication: PREMEDICATION
     Route: 048
     Dates: start: 20070807
  8. BENADRYL ^WARNER-LAMBERT^ /USA/ [Concomitant]
     Indication: PREMEDICATION
     Route: 048
     Dates: start: 20070807

REACTIONS (6)
  - ABDOMINAL DISCOMFORT [None]
  - CHEST DISCOMFORT [None]
  - DIZZINESS [None]
  - HYPERHIDROSIS [None]
  - HYPOTENSION [None]
  - HYPOXIA [None]
